FAERS Safety Report 9601931 (Version 1)
Quarter: 2013Q4

REPORT INFORMATION
  Report Type: Spontaneous
  Country: US (occurrence: None)
  Receive Date: 20131004
  Receipt Date: 20131004
  Transmission Date: 20140711
  Serious: Yes (Hospitalization)
  Sender: FDA-Public Use
  Company Number: None

PATIENT
  Age: 77 Year
  Sex: Female
  Weight: 96 kg

DRUGS (4)
  1. CARBAMAZEPINE [Suspect]
     Indication: PARAESTHESIA
     Route: 048
  2. ACETAMINOPHEN WITH CODEINE [Concomitant]
  3. BIMATOPROST [Concomitant]
  4. NACL 5% OPHTH OINTMENT [Concomitant]

REACTIONS (6)
  - Dysarthria [None]
  - Vision blurred [None]
  - Dizziness [None]
  - Ataxia [None]
  - Drug level increased [None]
  - Blood sodium decreased [None]
